FAERS Safety Report 9230322 (Version 2)
Quarter: 2013Q3

REPORT INFORMATION
  Report Type: Spontaneous
  Country: US (occurrence: None)
  Receive Date: 20130411
  Receipt Date: 20130722
  Transmission Date: 20140515
  Serious: Yes (Death, Other)
  Sender: FDA-Public Use
  Company Number: AMAG201300059

PATIENT
  Age: 78 Year
  Sex: Male
  Weight: 119.7 kg

DRUGS (19)
  1. FERAHEME [Suspect]
     Indication: IRON DEFICIENCY ANAEMIA
     Dosage: SINGLE, IV PUSH
     Route: 042
     Dates: start: 20130402, end: 20130402
  2. FERAHEME [Suspect]
     Indication: RENAL FAILURE CHRONIC
     Dosage: SINGLE, IV PUSH
     Route: 042
     Dates: start: 20130402, end: 20130402
  3. OXYGEN (OXYGEN) [Concomitant]
  4. NOVOLIN (INSULIN HUMAN, INSULIN HUMAN INJECTION, ISOPHANE) [Concomitant]
  5. NITROGLYCERIN (GLYCERYL TRINITRATE) [Concomitant]
  6. ALBUTEROL SULFATE (SALBUTAMOL SULFATE) [Concomitant]
  7. SYMBICORT [Concomitant]
  8. FLUTICASONE (FLUTICASONE PROPIONATE) [Concomitant]
  9. IPRATROPIUM (IPRATROPIUM BROMIDE) [Concomitant]
  10. PAROXETINE HYDROCHLORIDE (PAROXETINE HYDROCHLORIDE) [Concomitant]
  11. PROMETHAZINE HYDROCHLORIDE (PROMETHAZINE HYDDROCHLORIDE) [Concomitant]
  12. TAMSULOSIN (TAMSULOSIN) [Concomitant]
  13. ALPRAZOLAM (ALPRAZOLAM) [Concomitant]
  14. NICOTINE (NICOTINE) [Concomitant]
  15. DOCUSATE SODIUM (DOCUSATE SODIUM) [Concomitant]
  16. FERROUS SULFATE (FERROUS SULFATE) [Concomitant]
  17. NEPHRO-VITE (ASCORBIC ACID, BIOTIN, CYANOCOBALAMIN, FOLIC ACID, NICOTINAMIDE, PANTOTHENIC ACID, PYRIDOXINE HYDROCHLORIDE, RIBOFLAVIN, THIAMINE HYDROCHLORIDE) [Concomitant]
  18. PSYLLIUM HUSK WITH SUGAR (PSYLLIUM HUSK) [Concomitant]
  19. SENNOSIDES A+B (SENNOSIDES A+B) [Concomitant]

REACTIONS (4)
  - Cardiac arrest [None]
  - Dyspnoea [None]
  - Infusion related reaction [None]
  - Incorrect dose administered [None]
